FAERS Safety Report 15718580 (Version 1)
Quarter: 2018Q4

REPORT INFORMATION
  Report Type: Spontaneous
  Country: US (occurrence: US)
  Receive Date: 20181213
  Receipt Date: 20181213
  Transmission Date: 20190205
  Serious: Yes (Disabling)
  Sender: FDA-Public Use
  Company Number: None

PATIENT
  Age: 50 Year
  Sex: Female
  Weight: 60.75 kg

DRUGS (1)
  1. BREO ELLIPTA [Suspect]
     Active Substance: FLUTICASONE FUROATE\VILANTEROL TRIFENATATE
     Indication: ASTHMA
     Dosage: ?          OTHER STRENGTH:MCG;QUANTITY:30 PUFF(S);?
     Route: 055
     Dates: start: 20181112, end: 20181212

REACTIONS (9)
  - Vomiting [None]
  - Rhinorrhoea [None]
  - Pain [None]
  - Dysphagia [None]
  - Nasopharyngitis [None]
  - Immunosuppression [None]
  - Oropharyngeal pain [None]
  - Nasal congestion [None]
  - Pyrexia [None]

NARRATIVE: CASE EVENT DATE: 20181211
